FAERS Safety Report 4454533-2 (Version None)
Quarter: 2004Q3

REPORT INFORMATION
  Report Type: 
  Country: None (occurrence: None)
  Receive Date: 20040917
  Receipt Date: 20040917
  Transmission Date: 20050211
  Serious: Yes (Hospitalization)
  Sender: FDA-Public Use
  Company Number: None

PATIENT
  Age: 66 Year
  Sex: Male
  Weight: 75 kg

DRUGS (10)
  1. GEMCITABINE 1 GM ELI LILLY AND CO [Suspect]
     Indication: PANCREATIC CARCINOMA METASTATIC
     Dosage: 1920 MG WEEKLY INTRAVENOUS
     Route: 042
     Dates: start: 20040810, end: 20040914
  2. ANZEMET [Concomitant]
  3. ZOFRAN [Concomitant]
  4. METFORMIN HCL [Concomitant]
  5. LISINOPRIL [Concomitant]
  6. ZOCOR [Concomitant]
  7. CELESTID [Concomitant]
  8. ASPIRIN [Concomitant]
  9. K+ [Concomitant]
  10. PERCOCET [Concomitant]

REACTIONS (2)
  - POST PROCEDURAL COMPLICATION [None]
  - PULMONARY EMBOLISM [None]
